FAERS Safety Report 5089306-3 (Version None)
Quarter: 2006Q3

REPORT INFORMATION
  Report Type: 
  Country: None (occurrence: None)
  Receive Date: 20060822
  Receipt Date: 20060801
  Transmission Date: 20061208
  Serious: Yes (Hospitalization)
  Sender: FDA-Public Use
  Company Number: US200605005412

PATIENT
  Age: 87 Year
  Sex: Female
  Weight: 51.7 kg

DRUGS (11)
  1. FORTEO [Suspect]
     Indication: OSTEOPOROSIS
     Dates: start: 20051001
  2. FORTEO [Suspect]
     Indication: OSTEOPOROSIS
     Dates: start: 20060101
  3. FORTEO [Concomitant]
  4. ZESTRIL /USA/ (LISINOPRIL) [Concomitant]
  5. ZOCOR [Concomitant]
  6. PROTONIX [Concomitant]
  7. NITROBID /BRA/ (NITROFURANTOIN) [Concomitant]
  8. LORTAB [Concomitant]
  9. CAPSAICIN (CAPSAICIN) [Concomitant]
  10. DETROL - SLOW RELEASE (TOLTERODINE L-TARTRATE) [Concomitant]
  11. MAGNESIUM CHLORIDE ANHYDROUS (MAGNESIUM CHLORIDE ANHYDROUS) [Concomitant]

REACTIONS (2)
  - ASTHENIA [None]
  - HIP FRACTURE [None]
